FAERS Safety Report 8408398-4 (Version None)
Quarter: 2012Q2

REPORT INFORMATION
  Report Type: 
  Country: None (occurrence: None)
  Receive Date: 20120604
  Receipt Date: 20120530
  Transmission Date: 20120825
  Serious: Yes (Other)
  Sender: FDA-Public Use
  Company Number: FR-ROCHE-730473

PATIENT
  Sex: Female
  Weight: 60 kg

DRUGS (7)
  1. DESLORATADINE [Concomitant]
  2. DEXCHLORPHENIRAMINE MALEATE [Concomitant]
  3. VEMURAFENIB AND VEMURAFENIB [Suspect]
     Indication: METASTATIC MALIGNANT MELANOMA
     Dosage: LAST DOSE PRIOR TO SAE: 26 AUGUST 2010.
     Route: 048
  4. HIDROXIZIN [Concomitant]
  5. ALUMINUM HYDROXIDE AND MAGNESIUM TRISILICATE [Concomitant]
     Dosage: TDD REPORTED AS PRN
  6. IMODIUM [Concomitant]
     Dosage: TDD REPORTED AS PRN
  7. BETAMETHASONE [Concomitant]
     Dosage: 1 APPLICATION

REACTIONS (2)
  - MALIGNANT MELANOMA [None]
  - SQUAMOUS CELL CARCINOMA OF SKIN [None]
